FAERS Safety Report 8757785 (Version 1)
Quarter: 2012Q4

REPORT INFORMATION
  Report Type: 
  Country: GB (occurrence: GB)
  Receive Date: 20120828
  Receipt Date: 20120828
  Transmission Date: 20130627
  Serious: Yes (Disabling)
  Sender: FDA-Public Use
  Company Number: PHHY2012GB072493

PATIENT
  Age: 57 Year
  Sex: Male

DRUGS (2)
  1. AMOXICILLIN [Suspect]
     Indication: OROPHARYNGEAL PAIN
     Dosage: 500 mg, TID
     Route: 048
     Dates: start: 20120726, end: 20120727
  2. APROVEL [Concomitant]
     Indication: HYPERTENSION

REACTIONS (8)
  - Blood pressure increased [Recovering/Resolving]
  - Body temperature increased [Recovering/Resolving]
  - Diarrhoea [Recovered/Resolved]
  - Hypersensitivity [Recovering/Resolving]
  - Erythema [Recovering/Resolving]
  - Oedema peripheral [Recovering/Resolving]
  - Rash [Recovering/Resolving]
  - Pruritus [Recovering/Resolving]
